FAERS Safety Report 10436811 (Version 1)
Quarter: 2014Q3

REPORT INFORMATION
  Report Type: Spontaneous
  Country: US (occurrence: US)
  Receive Date: 20140908
  Receipt Date: 20140908
  Transmission Date: 20150326
  Serious: No
  Sender: FDA-Public Use
  Company Number: US-BRISTOL-MYERS SQUIBB COMPANY-20243036

PATIENT
  Age: 48 Year
  Sex: Male

DRUGS (10)
  1. SEROQUEL [Concomitant]
     Active Substance: QUETIAPINE FUMARATE
     Dosage: 2 TABLETS BY MOUTH EVERY EVENING,50 MG 1 TABLET BY MOUTH DAILY AS NEEDED
     Route: 048
  2. ABILIFY [Suspect]
     Active Substance: ARIPIPRAZOLE
     Indication: AVOIDANT PERSONALITY DISORDER
     Dosage: DOSE INCREASED TO 10 MG/DAY
     Dates: start: 201309
  3. HYDROXYZINE [Concomitant]
     Active Substance: HYDROXYZINE\HYDROXYZINE HYDROCHLORIDE
     Dosage: AS NEEDED
     Route: 048
  4. DEPAKOTE ER [Concomitant]
     Active Substance: DIVALPROEX SODIUM
     Dosage: 1 TABLET IN MORNING AND 2 TABLETS AT BEDTIME
  5. DEPAKOTE [Concomitant]
     Active Substance: DIVALPROEX SODIUM
     Dosage: 1 TABLET BY MOUTH IN MORNING
     Route: 048
  6. ABILIFY [Suspect]
     Active Substance: ARIPIPRAZOLE
     Indication: SCHIZOPHRENIA
     Dosage: DOSE INCREASED TO 10 MG/DAY
     Dates: start: 201309
  7. LATUDA [Suspect]
     Active Substance: LURASIDONE HYDROCHLORIDE
     Dosage: 1 TABLET IN BY MOUTH IN MORNING
     Route: 048
  8. ABILIFY [Suspect]
     Active Substance: ARIPIPRAZOLE
     Indication: BIPOLAR DISORDER
     Dosage: DOSE INCREASED TO 10 MG/DAY
     Dates: start: 201309
  9. ABILIFY [Suspect]
     Active Substance: ARIPIPRAZOLE
     Indication: OBSESSIVE-COMPULSIVE DISORDER
     Dosage: DOSE INCREASED TO 10 MG/DAY
     Dates: start: 201309
  10. BENZTROPINE MESYLATE. [Concomitant]
     Active Substance: BENZTROPINE MESYLATE
     Dosage: AS NEEDED

REACTIONS (4)
  - Hallucinations, mixed [Unknown]
  - Weight increased [Unknown]
  - Off label use [Unknown]
  - Aggression [Unknown]
